FAERS Safety Report 9544167 (Version 2)
Quarter: 2013Q3

REPORT INFORMATION
  Report Type: Spontaneous
  Country: FR (occurrence: FR)
  Receive Date: 20130923
  Receipt Date: 20130923
  Transmission Date: 20140515
  Serious: Yes (Life-Threatening, Other)
  Sender: FDA-Public Use
  Company Number: FR-MERCK-1303FRA005368

PATIENT
  Age: 15 Year
  Sex: Female

DRUGS (1)
  1. CYCLEANE 20 [Suspect]
     Indication: CONTRACEPTION
     Dosage: UNK
     Route: 048
     Dates: start: 200603, end: 200803

REACTIONS (7)
  - Abnormal behaviour [Recovered/Resolved with Sequelae]
  - Hydrocephalus [Recovered/Resolved]
  - Coma [Recovered/Resolved]
  - Amnestic disorder [Recovered/Resolved with Sequelae]
  - Disturbance in attention [Recovered/Resolved with Sequelae]
  - Thrombophlebitis [Recovered/Resolved with Sequelae]
  - Cerebral infarction [Recovered/Resolved with Sequelae]
